FAERS Safety Report 9285459 (Version 1)
Quarter: 2013Q2

REPORT INFORMATION
  Report Type: Spontaneous
  Country: US (occurrence: US)
  Receive Date: 20130513
  Receipt Date: 20130513
  Transmission Date: 20140414
  Serious: No
  Sender: FDA-Public Use
  Company Number: US-PFIZER INC-2013145581

PATIENT
  Age: 62 Year
  Sex: Female

DRUGS (2)
  1. CHANTIX [Suspect]
     Indication: SMOKING CESSATION THERAPY
     Dosage: UNK
     Dates: start: 2010, end: 2010
  2. CHANTIX [Suspect]
     Dosage: UNK
     Dates: start: 201105

REACTIONS (1)
  - Abnormal dreams [Recovered/Resolved]
